FAERS Safety Report 5926879-X (Version None)
Quarter: 2008Q4

REPORT INFORMATION
  Report Type: 
  Country: None (occurrence: None)
  Receive Date: 20081022
  Receipt Date: 20081015
  Transmission Date: 20090506
  Serious: Yes (Life-Threatening, Hospitalization)
  Sender: FDA-Public Use
  Company Number: NL-SANOFI-SYNTHELABO-A01200812738

PATIENT
  Sex: Male

DRUGS (6)
  1. CARBASALATE CALCIUM [Concomitant]
  2. DILTIAZEM HCL [Concomitant]
  3. METFORMIN HYDROCHLORIDE [Concomitant]
  4. OXALIPLATIN [Suspect]
     Indication: COLON CANCER
     Dosage: 250 MG
     Route: 041
     Dates: start: 20080801, end: 20080801
  5. AVASTIN [Suspect]
     Indication: COLON CANCER
     Dosage: 500 MG
     Route: 041
     Dates: start: 20080801, end: 20080801
  6. GLIMEPIRIDE [Concomitant]

REACTIONS (2)
  - HYPERTENSION [None]
  - PULMONARY HYPERTENSION [None]
